FAERS Safety Report 7364798-5 (Version None)
Quarter: 2011Q1

REPORT INFORMATION
  Report Type: 
  Country: None (occurrence: None)
  Receive Date: 20110321
  Receipt Date: 20110308
  Transmission Date: 20110831
  Serious: Yes (Hospitalization)
  Sender: FDA-Public Use
  Company Number: PHHY2011US19585

PATIENT
  Sex: Male
  Weight: 93 kg

DRUGS (7)
  1. FOLIC ACID [Concomitant]
  2. EXJADE [Suspect]
     Indication: SICKLE CELL ANAEMIA
     Dosage: 4000 MG, QD
     Route: 048
     Dates: start: 20060301, end: 20110101
  3. NORCO [Concomitant]
  4. DILAUDID [Concomitant]
  5. NORVASC [Concomitant]
  6. VITAMIN B-12 [Concomitant]
  7. HYDREA [Concomitant]

REACTIONS (5)
  - BACK PAIN [None]
  - LYMPHADENOPATHY [None]
  - PAIN IN EXTREMITY [None]
  - SICKLE CELL ANAEMIA WITH CRISIS [None]
  - BODY TEMPERATURE INCREASED [None]
